FAERS Safety Report 19550056 (Version 1)
Quarter: 2021Q3

REPORT INFORMATION
  Report Type: Spontaneous
  Country: FR (occurrence: FR)
  Receive Date: 20210715
  Receipt Date: 20210715
  Transmission Date: 20211014
  Serious: Yes (Other)
  Sender: FDA-Public Use
  Company Number: FR-TEVA-2021-FR-1931707

PATIENT
  Age: 55 Year
  Sex: Male
  Weight: 62 kg

DRUGS (8)
  1. LANSOPRAZOLE. [Suspect]
     Active Substance: LANSOPRAZOLE
     Dosage: 30MG
     Route: 048
     Dates: start: 20210419
  2. LOVENOX [Suspect]
     Active Substance: ENOXAPARIN SODIUM
     Indication: THROMBOSIS PROPHYLAXIS
     Dosage: 4000IU
     Route: 058
     Dates: start: 20210428
  3. DAPTOMYCINE [Suspect]
     Active Substance: DAPTOMYCIN
     Indication: SINUSITIS
     Dosage: 500MG
     Route: 042
     Dates: start: 20210413, end: 20210416
  4. PIPERACILLINE TAZOBACTAM MYLAN [Suspect]
     Active Substance: PIPERACILLIN SODIUM\TAZOBACTAM SODIUM
     Indication: SINUSITIS
     Dosage: 4GM
     Route: 042
     Dates: start: 20210427, end: 20210504
  5. POSACONAZOLE [Suspect]
     Active Substance: POSACONAZOLE
     Indication: MUCORMYCOSIS
     Dosage: LOADING DOSE 100MG * 2 THEN 100MG / D
     Route: 048
     Dates: start: 20210515, end: 20210519
  6. LAROXYL 40 MG/ML, SOLUTION BUVABLE [Suspect]
     Active Substance: AMITRIPTYLINE HYDROCHLORIDE
     Dosage: FROM 15 TO 30 DROPS PER DAY
     Route: 048
     Dates: start: 20210429, end: 20210506
  7. AMBISOME [Suspect]
     Active Substance: AMPHOTERICIN B
     Indication: MUCORMYCOSIS
     Dosage: 10MG / KG THEN DECREASE TO 550 MG DUE TO POOR RENAL TOLERANCE, POWDER FOR SUSPENSION OF LIPOSOMES FO
     Route: 042
     Dates: start: 20210427, end: 20210514
  8. CEFAZOLINE [Suspect]
     Active Substance: CEFAZOLIN SODIUM
     Indication: SINUSITIS
     Dosage: ADAPTED ACCORDING TO RENAL FUNCTION (1G / 12H) UP TO 2G / 8H, 1GM
     Route: 030
     Dates: start: 20210513

REACTIONS (1)
  - Cholestasis [Recovering/Resolving]

NARRATIVE: CASE EVENT DATE: 20210519
